FAERS Safety Report 12778407 (Version 2)
Quarter: 2017Q1

REPORT INFORMATION
  Report Type: Spontaneous
  Country: US (occurrence: US)
  Receive Date: 20160926
  Receipt Date: 20170112
  Transmission Date: 20170428
  Serious: Yes (Death, Hospitalization)
  Sender: FDA-Public Use
  Company Number: US-ACTELION-A-US2016-142235

PATIENT
  Age: 62 Year
  Sex: Female

DRUGS (13)
  1. FUROSEMIDE. [Concomitant]
     Active Substance: FUROSEMIDE
  2. VELETRI [Suspect]
     Active Substance: EPOPROSTENOL
     Indication: PULMONARY ARTERIAL HYPERTENSION
     Dosage: 46 NG/KG, PER MIN
     Route: 042
     Dates: start: 20160829
  3. METOPROLOL. [Concomitant]
     Active Substance: METOPROLOL
  4. LETAIRIS [Concomitant]
     Active Substance: AMBRISENTAN
  5. WARFARIN [Concomitant]
     Active Substance: WARFARIN
  6. POTASSIUM [Concomitant]
     Active Substance: POTASSIUM
  7. REMODULIN [Suspect]
     Active Substance: TREPROSTINIL
     Indication: PULMONARY ARTERIAL HYPERTENSION
     Dosage: 90.7 NG/KG, PER MIN
     Route: 042
     Dates: start: 20130416
  8. VIAGRA [Concomitant]
     Active Substance: SILDENAFIL CITRATE
  9. PRILOSEC [Concomitant]
     Active Substance: OMEPRAZOLE MAGNESIUM
  10. VITAMIN D [Concomitant]
     Active Substance: CHOLECALCIFEROL
  11. LEVOXYL [Concomitant]
     Active Substance: LEVOTHYROXINE SODIUM
  12. NIFEDIPINE. [Concomitant]
     Active Substance: NIFEDIPINE
  13. SIMVASTATIN. [Concomitant]
     Active Substance: SIMVASTATIN

REACTIONS (1)
  - Death [Fatal]

NARRATIVE: CASE EVENT DATE: 201609
